FAERS Safety Report 12963996 (Version 1)
Quarter: 2016Q4

REPORT INFORMATION
  Report Type: Report from Study
  Country: MX (occurrence: MX)
  Receive Date: 20161122
  Receipt Date: 20161122
  Transmission Date: 20170207
  Serious: Yes (Other)
  Sender: FDA-Public Use
  Company Number: PHHY2016MX118901

PATIENT
  Sex: Male

DRUGS (3)
  1. EXFORGE HCT [Suspect]
     Active Substance: AMLODIPINE BESYLATE\HYDROCHLOROTHIAZIDE\VALSARTAN
     Indication: HYPERTENSION
     Dosage: 1 DF (AMLODIPINE 10 MG, HYDROCHLOROTHIAZIDE 25 MG, VALSARTAN 320 MG), QD
     Route: 065
  2. RASILEZ [Suspect]
     Active Substance: ALISKIREN
     Indication: HYPERTENSION
     Dosage: 2 DF, QD
     Route: 065
  3. RASILEZ [Suspect]
     Active Substance: ALISKIREN
     Dosage: 0.5 DF, QD (2 YEARS AGO APPROXIMATELY)
     Route: 065

REACTIONS (4)
  - Wrong technique in product usage process [Not Recovered/Not Resolved]
  - Hemiparesis [Not Recovered/Not Resolved]
  - Embolism [Not Recovered/Not Resolved]
  - Drug prescribing error [Not Recovered/Not Resolved]
